FAERS Safety Report 9524422 (Version 1)
Quarter: 2013Q3

REPORT INFORMATION
  Report Type: Spontaneous
  Country: US (occurrence: None)
  Receive Date: 20130912
  Receipt Date: 20130912
  Transmission Date: 20140515
  Serious: Yes (Disabling)
  Sender: FDA-Public Use
  Company Number: None

PATIENT
  Age: 30 Year
  Sex: Female
  Weight: 68.04 kg

DRUGS (3)
  1. LITHIUM CARBONATE [Suspect]
     Indication: BIPOLAR DISORDER
     Dosage: 600 MG 60 PILLS ONCE DAILY MOUTH
     Route: 048
     Dates: end: 20130902
  2. LITHIUM CARBONATE [Suspect]
     Indication: MUNCHAUSEN^S SYNDROME
     Dosage: 600 MG 60 PILLS ONCE DAILY MOUTH
     Route: 048
     Dates: end: 20130902
  3. ZYPREXA [Concomitant]

REACTIONS (4)
  - Hypothyroidism [None]
  - Joint swelling [None]
  - Local swelling [None]
  - Rash [None]
